FAERS Safety Report 4722946-7 (Version None)
Quarter: 2005Q3

REPORT INFORMATION
  Report Type: 
  Country: None (occurrence: None)
  Receive Date: 20050719
  Receipt Date: 20040901
  Transmission Date: 20060218
  Serious: Yes (Hospitalization)
  Sender: FDA-Public Use
  Company Number: 2004231223US

PATIENT
  Age: 34 Year
  Sex: Female

DRUGS (12)
  1. CELEBREX [Suspect]
     Indication: MONARTHRITIS
     Dosage: 200 MG, QD, ; SEE IMAGE
     Dates: start: 20001201, end: 20001201
  2. CELEBREX [Suspect]
     Indication: MONARTHRITIS
     Dosage: 200 MG, QD, ; SEE IMAGE
     Dates: start: 20001201, end: 20010501
  3. CELEBREX [Suspect]
     Indication: MONARTHRITIS
     Dosage: 200 MG, QD, ; SEE IMAGE
     Dates: start: 20000225
  4. CELEBREX [Suspect]
     Indication: MONARTHRITIS
     Dosage: 200 MG, QD, ; SEE IMAGE
     Dates: start: 20000719
  5. TYLENOL W/ CODEINE NO. 3 [Concomitant]
  6. AMARYL [Concomitant]
  7. TIAZAC [Concomitant]
  8. CELEXA [Concomitant]
  9. RABEPRAZOLE SODIUM [Concomitant]
  10. ULTRAM [Concomitant]
  11. ALBUTEROL [Concomitant]
  12. AZMACORT [Concomitant]

REACTIONS (1)
  - NON-CARDIAC CHEST PAIN [None]
